FAERS Safety Report 9098809 (Version 1)
Quarter: 2013Q1

REPORT INFORMATION
  Report Type: Spontaneous
  Country: US (occurrence: US)
  Receive Date: 20130213
  Receipt Date: 20130213
  Transmission Date: 20140127
  Serious: Yes (Life-Threatening)
  Sender: FDA-Public Use
  Company Number: GXBR2013US000589

PATIENT
  Sex: Female

DRUGS (1)
  1. NADOLOL [Suspect]
     Dosage: 20 MG, UNK

REACTIONS (1)
  - Drug intolerance [Unknown]
